FAERS Safety Report 16958798 (Version 1)
Quarter: 2019Q4

REPORT INFORMATION
  Report Type: Spontaneous
  Country: CN (occurrence: CN)
  Receive Date: 20191024
  Receipt Date: 20191024
  Transmission Date: 20200122
  Serious: Yes (Other)
  Sender: FDA-Public Use
  Company Number: CN-FRESENIUS KABI-FK201911741

PATIENT
  Age: 39 Year
  Sex: Male

DRUGS (3)
  1. METHYLPREDNISOLONE (MANUFACTURER UNKNOWN) [Suspect]
     Active Substance: METHYLPREDNISOLONE
     Indication: MYELITIS
     Dosage: 1000MG
     Route: 042
     Dates: start: 20140214, end: 201402
  2. SODIUM CHLORIDE. [Concomitant]
     Active Substance: SODIUM CHLORIDE
     Indication: MYELITIS
     Dosage: MIXTURE
     Route: 065
     Dates: start: 20140214, end: 201402
  3. METHYLPREDNISOLONE (MANUFACTURER UNKNOWN) [Suspect]
     Active Substance: METHYLPREDNISOLONE
     Indication: DEMYELINATION

REACTIONS (2)
  - Condition aggravated [Recovered/Resolved with Sequelae]
  - Paraplegia [Recovered/Resolved with Sequelae]

NARRATIVE: CASE EVENT DATE: 20140215
